FAERS Safety Report 4937228-8 (Version None)
Quarter: 2006Q1

REPORT INFORMATION
  Report Type: 
  Country: None (occurrence: None)
  Receive Date: 20060309
  Receipt Date: 20060212
  Transmission Date: 20060701
  Serious: Yes (Hospitalization)
  Sender: FDA-Public Use
  Company Number: PHBS2006IT02655

PATIENT
  Age: 58 Year
  Sex: Male

DRUGS (10)
  1. LIPAXAN (ITALFARMACO) [Suspect]
     Dosage: 80 MG, UNK
  2. CONDIUREN [Concomitant]
  3. BISOPROLOL [Concomitant]
  4. LASIX [Concomitant]
  5. LUVION [Concomitant]
  6. ZAROXOLYN [Concomitant]
  7. INSULIN [Concomitant]
  8. CLENIL [Concomitant]
  9. OXIVENT [Concomitant]
  10. LANSOX [Concomitant]

REACTIONS (3)
  - BRAIN HYPOXIA [None]
  - CHOREA [None]
  - DYSKINESIA [None]
